FAERS Safety Report 7211078-4 (Version None)
Quarter: 2011Q1

REPORT INFORMATION
  Report Type: 
  Country: None (occurrence: None)
  Receive Date: 20110105
  Receipt Date: 20101227
  Transmission Date: 20110831
  Serious: Yes (Other)
  Sender: FDA-Public Use
  Company Number: PHHY2010US88632

PATIENT
  Sex: Female

DRUGS (8)
  1. GILENYA [Suspect]
     Dosage: 0.5 MG, QD
     Route: 048
     Dates: start: 20101215
  2. TYLENOL PM [Concomitant]
     Dosage: UNK
  3. CYMBALTA [Concomitant]
     Dosage: 120 MG, UNK
  4. SIMVASTATIN [Concomitant]
  5. CRANBERRY PILLS [Concomitant]
     Dosage: UNK
  6. VITAMIN D [Concomitant]
     Dosage: 50000 IU, QW
  7. LOVAZA [Concomitant]
     Dosage: UNK
  8. ABILIFY [Concomitant]
     Dosage: 2.5 MG, UNK

REACTIONS (2)
  - DYSARTHRIA [None]
  - CONFUSIONAL STATE [None]
